FAERS Safety Report 24585016 (Version 2)
Quarter: 2025Q2

REPORT INFORMATION
  Report Type: Spontaneous
  Country: US (occurrence: US)
  Receive Date: 20241106
  Receipt Date: 20250530
  Transmission Date: 20250717
  Serious: Yes (Death, Other)
  Sender: CHATTEM
  Company Number: US-OPELLA-2024OHG037067

PATIENT
  Sex: Male

DRUGS (1)
  1. GOLD BOND ORIGINAL STRENGTH [Suspect]
     Active Substance: MENTHOL
     Indication: Product used for unknown indication
     Route: 065

REACTIONS (4)
  - Lung squamous cell carcinoma metastatic [Fatal]
  - Exposure to chemical pollution [Fatal]
  - Metastases to bone [Unknown]
  - Mesothelioma [Unknown]

NARRATIVE: CASE EVENT DATE: 20180101
